FAERS Safety Report 9688099 (Version 1)
Quarter: 2013Q4

REPORT INFORMATION
  Report Type: Spontaneous
  Country: ES (occurrence: ES)
  Receive Date: 20131114
  Receipt Date: 20131114
  Transmission Date: 20140711
  Serious: Yes (Death)
  Sender: FDA-Public Use
  Company Number: ES-MYLANLABS-2013S1025189

PATIENT
  Age: 75 Year
  Sex: Male

DRUGS (5)
  1. FLURAZEPAM [Suspect]
     Indication: COMPLETED SUICIDE
     Route: 065
  2. DIAZEPAM [Suspect]
     Indication: COMPLETED SUICIDE
     Route: 065
  3. VENLAFAXINE [Suspect]
     Indication: COMPLETED SUICIDE
     Route: 065
  4. TRAMADOL [Suspect]
     Indication: COMPLETED SUICIDE
     Route: 065
  5. CITALOPRAM [Suspect]
     Indication: COMPLETED SUICIDE
     Route: 065

REACTIONS (3)
  - Death [Fatal]
  - Completed suicide [Fatal]
  - Toxicity to various agents [Fatal]
